FAERS Safety Report 5412453-0 (Version None)
Quarter: 2007Q3

REPORT INFORMATION
  Report Type: 
  Country: None (occurrence: None)
  Receive Date: 20070813
  Receipt Date: 20070809
  Transmission Date: 20080115
  Serious: Yes (Hospitalization, Other)
  Sender: FDA-Public Use
  Company Number: US-ASTRAZENECA-2007UW19367

PATIENT
  Age: 27 Year
  Sex: Female

DRUGS (5)
  1. SEROQUEL [Suspect]
     Dosage: 300 TO 400 MG PER DAY
     Route: 048
     Dates: start: 20050101
  2. SEROQUEL [Suspect]
     Route: 048
  3. METHAMPHETAMINE HYDROCHLORIDE [Suspect]
  4. COCAINE [Suspect]
  5. LITIUM [Concomitant]

REACTIONS (3)
  - HEPATIC ENZYME INCREASED [None]
  - HEPATITIS C [None]
  - SUICIDAL BEHAVIOUR [None]
